FAERS Safety Report 5710060-3 (Version None)
Quarter: 2008Q2

REPORT INFORMATION
  Report Type: 
  Country: None (occurrence: None)
  Receive Date: 20080418
  Receipt Date: 20070913
  Transmission Date: 20081010
  Serious: No
  Sender: FDA-Public Use
  Company Number: US-ASTRAZENECA-2007UW21655

PATIENT
  Age: 30 Year
  Sex: Female
  Weight: 181.4 kg

DRUGS (5)
  1. TOPROL-XL [Suspect]
     Route: 048
     Dates: start: 20050101
  2. REPLIVIA [Concomitant]
  3. ZYRTEC [Concomitant]
  4. NORVASC [Concomitant]
  5. DIOVAN [Concomitant]

REACTIONS (1)
  - WEIGHT INCREASED [None]
